FAERS Safety Report 9645196 (Version 1)
Quarter: 2013Q4

REPORT INFORMATION
  Report Type: Report from Study
  Country: GR (occurrence: GR)
  Receive Date: 20131025
  Receipt Date: 20131025
  Transmission Date: 20140711
  Serious: Yes (Death)
  Sender: FDA-Public Use
  Company Number: GR-ASTELLAS-2013US011093

PATIENT
  Age: 80 Year
  Sex: Male

DRUGS (3)
  1. ERLOTINIB TABLET [Suspect]
     Indication: NON-SMALL CELL LUNG CANCER
     Dosage: 150 MG, UID/QD
     Route: 065
     Dates: start: 201109
  2. ZOLEDRONIC ACID [Suspect]
     Indication: NON-SMALL CELL LUNG CANCER
     Dosage: UNK
     Route: 065
     Dates: start: 201109
  3. ZOLEDRONIC ACID [Suspect]
     Dosage: UNK
     Route: 065
     Dates: start: 201105, end: 201108

REACTIONS (1)
  - Death [Fatal]
